FAERS Safety Report 4910173-X (Version None)
Quarter: 2006Q1

REPORT INFORMATION
  Report Type: 
  Country: None (occurrence: None)
  Receive Date: 20060209
  Receipt Date: 20060127
  Transmission Date: 20060701
  Serious: Yes (Death, Hospitalization)
  Sender: FDA-Public Use
  Company Number: US200601001869

PATIENT
  Age: 72 Year
  Sex: Male
  Weight: 90 kg

DRUGS (2)
  1. GEMZAR [Suspect]
     Indication: SMALL CELL LUNG CANCER METASTATIC
     Dosage: 1000 MG/M2,
  2. TAXOL [Concomitant]

REACTIONS (4)
  - LUNG CANCER METASTATIC [None]
  - PULMONARY FIBROSIS [None]
  - PULMONARY TOXICITY [None]
  - RESPIRATORY FAILURE [None]
